FAERS Safety Report 25968745 (Version 1)
Quarter: 2025Q4

REPORT INFORMATION
  Report Type: Spontaneous
  Country: US (occurrence: None)
  Receive Date: 20251027
  Receipt Date: 20251027
  Transmission Date: 20260117
  Serious: Yes (Hospitalization)
  Sender: FDA-CTU
  Company Number: None

PATIENT
  Age: 62 Year
  Sex: Male
  Weight: 102.97 kg

DRUGS (1)
  1. LENVIMA [Suspect]
     Active Substance: LENVATINIB
     Dosage: 18 MG DAILY ORAL
     Route: 048

REACTIONS (3)
  - Dehydration [None]
  - Acute kidney injury [None]
  - Gastroenteritis viral [None]

NARRATIVE: CASE EVENT DATE: 20251021
